FAERS Safety Report 18833129 (Version 1)
Quarter: 2021Q1

REPORT INFORMATION
  Report Type: Spontaneous
  Country: US (occurrence: US)
  Receive Date: 20210202
  Receipt Date: 20210202
  Transmission Date: 20210419
  Serious: Yes (Life-Threatening)
  Sender: FDA-Public Use
  Company Number: None

PATIENT
  Age: 59 Year
  Sex: Female
  Weight: 65.25 kg

DRUGS (5)
  1. MAGNESIUM [Concomitant]
     Active Substance: MAGNESIUM
  2. FISH OIL [Concomitant]
     Active Substance: FISH OIL
  3. VIT D [Concomitant]
     Active Substance: VITAMIN D NOS
  4. MKO MELT [Suspect]
     Active Substance: KETAMINE HYDROCHLORIDE\MIDAZOLAM\ONDANSETRON HYDROCHLORIDE
     Indication: ANXIETY
     Dates: start: 20210202, end: 20210202
  5. LOSARTAN. [Concomitant]
     Active Substance: LOSARTAN

REACTIONS (2)
  - Palpitations [None]
  - Blood pressure increased [None]

NARRATIVE: CASE EVENT DATE: 20210202
